FAERS Safety Report 5830021-3 (Version None)
Quarter: 2008Q3

REPORT INFORMATION
  Report Type: 
  Country: None (occurrence: None)
  Receive Date: 20080801
  Receipt Date: 20080725
  Transmission Date: 20090109
  Serious: Yes (Death, Hospitalization)
  Sender: FDA-Public Use
  Company Number: ES-AVENTIS-200714642GDDC

PATIENT
  Age: 47 Year
  Sex: Female

DRUGS (4)
  1. DOCETAXEL [Suspect]
     Route: 042
     Dates: start: 20070327, end: 20070510
  2. PLACEBO [Suspect]
     Route: 042
     Dates: start: 20070327, end: 20070510
  3. FLUOXETINE [Concomitant]
     Dosage: DOSE: UNK
     Dates: start: 20070301
  4. ALPRAZOLAM [Concomitant]
     Dosage: DOSE: UNK
     Dates: start: 20070301

REACTIONS (2)
  - HEPATORENAL FAILURE [None]
  - PNEUMONIA [None]
